FAERS Safety Report 4564459-1 (Version None)
Quarter: 2005Q1

REPORT INFORMATION
  Report Type: 
  Country: None (occurrence: None)
  Receive Date: 20050128
  Receipt Date: 20041206
  Transmission Date: 20050727
  Serious: No
  Sender: FDA-Public Use
  Company Number: US-BRISTOL-MYERS SQUIBB COMPANY-12788253

PATIENT
  Age: 50 Year
  Sex: Male

DRUGS (1)
  1. ULTRAVATE [Suspect]

REACTIONS (1)
  - PSORIASIS [None]
